FAERS Safety Report 8875576 (Version 2)
Quarter: 2012Q4

REPORT INFORMATION
  Report Type: 
  Country: BR (occurrence: BR)
  Receive Date: 20121023
  Receipt Date: 20121207
  Transmission Date: 20130627
  Serious: Yes (Other)
  Sender: FDA-Public Use
  Company Number: PHHY2012BR094430

PATIENT
  Age: 70 Year
  Sex: Female
  Weight: 58 kg

DRUGS (3)
  1. DIOVAN [Suspect]
     Indication: HYPERTENSION
     Dosage: 320 mg, daily
     Route: 048
  2. DIOVAN HCT [Suspect]
     Dosage: UNK UKN, UNK
  3. PURAN T4 [Concomitant]
     Indication: HYPOTHYROIDISM
     Dosage: 1 DF, daily
     Route: 048

REACTIONS (11)
  - Cataract [Recovered/Resolved]
  - Blood pressure increased [Not Recovered/Not Resolved]
  - Product colour issue [Unknown]
  - Hyperhidrosis [Not Recovered/Not Resolved]
  - Malaise [Not Recovered/Not Resolved]
  - Aphthous stomatitis [Recovering/Resolving]
  - Nervousness [Unknown]
  - Chest pain [Not Recovered/Not Resolved]
  - Vertigo [Not Recovered/Not Resolved]
  - Fatigue [Not Recovered/Not Resolved]
  - Drug dispensing error [Unknown]
